FAERS Safety Report 23866351 (Version 2)
Quarter: 2024Q2

REPORT INFORMATION
  Report Type: Spontaneous
  Country: SE (occurrence: SE)
  Receive Date: 20240517
  Receipt Date: 20240621
  Transmission Date: 20240716
  Serious: Yes (Hospitalization, Other)
  Sender: FDA-Public Use
  Company Number: SE-NEBO-PC014222

PATIENT
  Age: 59 Year
  Sex: Male
  Weight: 94 kg

DRUGS (23)
  1. MILRINONE LACTATE [Concomitant]
     Active Substance: MILRINONE LACTATE
     Dates: start: 20240328
  2. Albumin Baxalta [Concomitant]
     Dates: start: 20240329
  3. MOVICOL [Concomitant]
     Active Substance: POLYETHYLENE GLYCOL 3350\POTASSIUM CHLORIDE\SODIUM BICARBONATE\SODIUM CHLORIDE
  4. ATORVASTATIN [Concomitant]
     Active Substance: ATORVASTATIN
  5. PIPERACILLIN SODIUM\TAZOBACTAM SODIUM [Concomitant]
     Active Substance: PIPERACILLIN SODIUM\TAZOBACTAM SODIUM
  6. PIPERACILLIN SODIUM\TAZOBACTAM SODIUM [Concomitant]
     Active Substance: PIPERACILLIN SODIUM\TAZOBACTAM SODIUM
     Dates: start: 20240401
  7. METOPROLOL [Concomitant]
     Active Substance: METOPROLOL
  8. ACETAMINOPHEN [Concomitant]
     Active Substance: ACETAMINOPHEN
     Dates: start: 20240402
  9. SILDENAFIL [Concomitant]
     Active Substance: SILDENAFIL
     Dates: start: 20240329
  10. JARDIANCE [Concomitant]
     Active Substance: EMPAGLIFLOZIN
  11. KANDESARTAN [Concomitant]
     Dates: start: 20240405
  12. ALLOPURINOL [Concomitant]
     Active Substance: ALLOPURINOL
  13. TARGINIQ ER [Concomitant]
     Active Substance: NALOXONE HYDROCHLORIDE\OXYCODONE HYDROCHLORIDE
     Dates: start: 20240405
  14. IRON ISOMALTOSIDE 1000 [Suspect]
     Active Substance: IRON ISOMALTOSIDE 1000
     Indication: Iron deficiency
     Dates: start: 20240408, end: 20240408
  15. IRON ISOMALTOSIDE 1000 [Suspect]
     Active Substance: IRON ISOMALTOSIDE 1000
     Indication: Iron deficiency
     Dates: start: 20240408, end: 20240408
  16. FUROSEMIDE [Concomitant]
     Active Substance: FUROSEMIDE
     Indication: Urine output decreased
     Dates: start: 20240408
  17. WARFARIN SODIUM [Concomitant]
     Active Substance: WARFARIN SODIUM
  18. SODIUM PICOSULFATE [Concomitant]
     Active Substance: SODIUM PICOSULFATE
  19. FRAGMIN [Concomitant]
     Active Substance: DALTEPARIN SODIUM
     Dates: start: 20240324
  20. POTASSIUM CHLORIDE [Concomitant]
     Active Substance: POTASSIUM CHLORIDE
  21. ESOMEPRAZOLE [Concomitant]
     Active Substance: ESOMEPRAZOLE
  22. Zopliklon [Concomitant]
     Dates: start: 20240402
  23. EPLERENONE [Concomitant]
     Active Substance: EPLERENONE

REACTIONS (7)
  - Foaming at mouth [Not Recovered/Not Resolved]
  - Pulmonary oedema [Not Recovered/Not Resolved]
  - Loss of consciousness [Not Recovered/Not Resolved]
  - Urinary incontinence [Not Recovered/Not Resolved]
  - Tachycardia [Not Recovered/Not Resolved]
  - Fishbane reaction [Not Recovered/Not Resolved]
  - Anaphylactic shock [Not Recovered/Not Resolved]

NARRATIVE: CASE EVENT DATE: 20240408
